FAERS Safety Report 4349470-8 (Version None)
Quarter: 2004Q2

REPORT INFORMATION
  Report Type: 
  Country: None (occurrence: None)
  Receive Date: 20040426
  Receipt Date: 20040420
  Transmission Date: 20050107
  Serious: Yes (Other)
  Sender: FDA-Public Use
  Company Number: 2003041184

PATIENT
  Sex: Male

DRUGS (1)
  1. TAHOR (ATORVASTATIN CALCIUM) (ATORVASTATIN) [Suspect]
     Indication: ILL-DEFINED DISORDER
     Dates: end: 20030101

REACTIONS (4)
  - BLOOD CREATINE PHOSPHOKINASE INCREASED [None]
  - CERVICAL SPINAL STENOSIS [None]
  - GAMMA-GLUTAMYLTRANSFERASE INCREASED [None]
  - LYME DISEASE [None]
